FAERS Safety Report 8181738-X (Version None)
Quarter: 2012Q1

REPORT INFORMATION
  Report Type: 
  Country: None (occurrence: None)
  Receive Date: 20120302
  Receipt Date: 20120218
  Transmission Date: 20120608
  Serious: Yes (Other)
  Sender: FDA-Public Use
  Company Number: DE-FRI-1000028710

PATIENT
  Age: 59 Year
  Sex: Female
  Weight: 60 kg

DRUGS (5)
  1. ESCITALOPRAM OXALATE [Suspect]
     Dosage: 8 MG
     Route: 048
     Dates: start: 20110402, end: 20110505
  2. ESCITALOPRAM OXALATE [Suspect]
     Indication: PANIC DISORDER
  3. ESCITALOPRAM OXALATE [Suspect]
     Dosage: 10 MG
     Route: 048
     Dates: start: 20110222, end: 20110401
  4. ESCITALOPRAM OXALATE [Suspect]
     Indication: DEPRESSION
     Dosage: 5 MG
     Route: 048
     Dates: start: 20110216, end: 20110221
  5. DOXEPIN HCL [Concomitant]
     Indication: DEPRESSION
     Dosage: 15-80 MG
     Route: 048
     Dates: start: 20090901, end: 20110221

REACTIONS (11)
  - PANIC ATTACK [None]
  - INSOMNIA [None]
  - NAUSEA [None]
  - WEIGHT DECREASED [None]
  - DIZZINESS [None]
  - RESTLESSNESS [None]
  - SUICIDAL IDEATION [None]
  - NERVOUSNESS [None]
  - SUPRAVENTRICULAR EXTRASYSTOLES [None]
  - DYSGEUSIA [None]
  - DECREASED APPETITE [None]
